FAERS Safety Report 22370311 (Version 2)
Quarter: 2023Q2

REPORT INFORMATION
  Report Type: Spontaneous
  Country: US (occurrence: US)
  Receive Date: 20230526
  Receipt Date: 20230601
  Transmission Date: 20230722
  Serious: No
  Sender: FDA-Public Use
  Company Number: US-JNJFOC-20230558643

PATIENT
  Age: 44 Year
  Sex: Male

DRUGS (1)
  1. INVEGA [Suspect]
     Active Substance: PALIPERIDONE
     Indication: Bipolar disorder
     Route: 048

REACTIONS (1)
  - Photosensitivity reaction [Unknown]

NARRATIVE: CASE EVENT DATE: 20230401
